FAERS Safety Report 17133996 (Version 3)
Quarter: 2020Q1

REPORT INFORMATION
  Report Type: Spontaneous
  Country: FR (occurrence: FR)
  Receive Date: 20191210
  Receipt Date: 20200130
  Transmission Date: 20200409
  Serious: Yes (Hospitalization, Other)
  Sender: FDA-Public Use
  Company Number: FR-AUROBINDO-AUR-APL-2019-103879

PATIENT
  Age: 72 Year
  Sex: Male

DRUGS (6)
  1. DOLUTEGRAVIR [Interacting]
     Active Substance: DOLUTEGRAVIR
     Indication: HIV INFECTION
     Dosage: 50 MILLIGRAM, ONCE A DAY
     Route: 065
  2. RILPIVIRINE [Interacting]
     Active Substance: RILPIVIRINE
     Indication: HIV INFECTION
     Dosage: 25 MILLIGRAM, ONCE A DAY
     Route: 065
  3. METFORMIN [Interacting]
     Active Substance: METFORMIN HYDROCHLORIDE
     Indication: TYPE 2 DIABETES MELLITUS
     Dosage: 1000 MILLIGRAM, TWO TIMES A DAY (MORNING AND EVENING)
     Route: 065
  4. RILPIVIRINE [Interacting]
     Active Substance: RILPIVIRINE
     Indication: HIV INFECTION
  5. DOLUTEGRAVIR;RILPIVIRINE [Interacting]
     Active Substance: DOLUTEGRAVIR SODIUM\RILPIVIRINE HYDROCHLORIDE
     Indication: HIV INFECTION
     Dosage: 1 DOSAGE FORM, ONCE A DAY (50 MG/25 MG PER DAY)
     Route: 065
  6. IBUPROFEN. [Suspect]
     Active Substance: IBUPROFEN
     Indication: PRODUCT USED FOR UNKNOWN INDICATION
     Dosage: UNK
     Route: 065

REACTIONS (6)
  - Lactic acidosis [Unknown]
  - Vomiting [Unknown]
  - Drug interaction [Unknown]
  - Abdominal pain [Unknown]
  - Acute kidney injury [Unknown]
  - Glomerular filtration rate decreased [Unknown]
